FAERS Safety Report 4984800-5 (Version None)
Quarter: 2006Q2

REPORT INFORMATION
  Report Type: 
  Country: None (occurrence: None)
  Receive Date: 20060427
  Receipt Date: 20050912
  Transmission Date: 20061013
  Serious: Yes (Other)
  Sender: FDA-Public Use
  Company Number: US-MERCK-0509USA01574

PATIENT
  Age: 60 Year
  Sex: Female
  Weight: 73 kg

DRUGS (8)
  1. VIOXX [Suspect]
     Indication: PAIN
     Route: 048
     Dates: start: 20010101, end: 20040101
  2. CELEBREX [Concomitant]
     Route: 065
  3. XANAX [Concomitant]
     Route: 065
  4. METHADONE HYDROCHLORIDE [Concomitant]
     Route: 065
  5. AMBIEN [Concomitant]
     Route: 065
  6. SOMA [Concomitant]
     Route: 065
  7. VICODIN [Concomitant]
     Route: 065
  8. [THERAPY UNSPECIFIED] [Concomitant]
     Indication: DEPRESSION
     Route: 065

REACTIONS (9)
  - CEREBRAL ARTERIOSCLEROSIS [None]
  - CEREBROVASCULAR ACCIDENT [None]
  - FALL [None]
  - HEADACHE [None]
  - MALAISE [None]
  - TRANSIENT ISCHAEMIC ATTACK [None]
  - UPPER LIMB FRACTURE [None]
  - VERTIGO [None]
  - VISUAL FIELD DEFECT [None]
